FAERS Safety Report 8272601-4 (Version None)
Quarter: 2012Q2

REPORT INFORMATION
  Report Type: 
  Country: None (occurrence: None)
  Receive Date: 20120410
  Receipt Date: 20120329
  Transmission Date: 20120825
  Serious: No
  Sender: FDA-Public Use
  Company Number: JP-ELI_LILLY_AND_COMPANY-JP201111009118

PATIENT
  Sex: Female

DRUGS (3)
  1. ONE ALPHA [Concomitant]
     Dosage: UNK
     Route: 048
     Dates: end: 20111130
  2. FORTEO [Suspect]
     Indication: OSTEOPOROSIS
     Dosage: UNK
     Route: 058
     Dates: start: 20111124
  3. ISOSORBIDE DINITRATE [Concomitant]
     Indication: PALPITATIONS
     Dosage: UNK
     Route: 048

REACTIONS (5)
  - FATIGUE [None]
  - DEPRESSED LEVEL OF CONSCIOUSNESS [None]
  - NASOPHARYNGITIS [None]
  - CONSTIPATION [None]
  - HEADACHE [None]
